FAERS Safety Report 12467196 (Version 1)
Quarter: 2016Q2

REPORT INFORMATION
  Report Type: Spontaneous
  Country: US (occurrence: None)
  Receive Date: 20160614
  Receipt Date: 20160614
  Transmission Date: 20160815
  Serious: No
  Sender: FDA-Public Use
  Company Number: None

PATIENT

DRUGS (2)
  1. RITALIN LA [Suspect]
     Active Substance: METHYLPHENIDATE HYDROCHLORIDE
  2. RITALIN SR [Suspect]
     Active Substance: METHYLPHENIDATE HYDROCHLORIDE

REACTIONS (7)
  - Drug dispensing error [None]
  - Incorrect dose administered [None]
  - Emotional disorder [None]
  - Disturbance in attention [None]
  - Crying [None]
  - Frustration tolerance decreased [None]
  - Anxiety [None]

NARRATIVE: CASE EVENT DATE: 2016
